FAERS Safety Report 13789783 (Version 2)
Quarter: 2017Q3

REPORT INFORMATION
  Report Type: Spontaneous
  Country: JP (occurrence: JP)
  Receive Date: 20170725
  Receipt Date: 20170926
  Transmission Date: 20171127
  Serious: Yes (Death, Other)
  Sender: FDA-Public Use
  Company Number: JP-CIPLA LTD.-2017JP13279

PATIENT

DRUGS (14)
  1. GEMCITABINE [Suspect]
     Active Substance: GEMCITABINE\GEMCITABINE HYDROCHLORIDE
     Indication: METASTASES TO LYMPH NODES
  2. GEMCITABINE [Suspect]
     Active Substance: GEMCITABINE\GEMCITABINE HYDROCHLORIDE
     Indication: METASTASES TO SKIN
  3. CARBOPLATIN. [Suspect]
     Active Substance: CARBOPLATIN
     Indication: TRANSITIONAL CELL CARCINOMA
  4. VINBLASTINE [Suspect]
     Active Substance: VINBLASTINE
     Indication: METASTASES TO LUNG
     Dosage: 3 CYCLICAL
     Route: 065
     Dates: start: 201410, end: 2015
  5. METHOTREXATE. [Suspect]
     Active Substance: METHOTREXATE
     Indication: METASTASES TO LYMPH NODES
  6. CARBOPLATIN. [Suspect]
     Active Substance: CARBOPLATIN
     Indication: METASTASES TO LUNG
     Dosage: 3 CYCLICAL
     Route: 065
     Dates: start: 201408, end: 2014
  7. CARBOPLATIN. [Suspect]
     Active Substance: CARBOPLATIN
     Indication: METASTASES TO LYMPH NODES
  8. EPIRUBICIN [Suspect]
     Active Substance: EPIRUBICIN
     Indication: METASTASES TO LUNG
     Dosage: 3 CYCLICAL
     Route: 065
     Dates: start: 201410, end: 2015
  9. VINBLASTINE [Suspect]
     Active Substance: VINBLASTINE
     Indication: METASTASES TO LYMPH NODES
  10. GEMCITABINE [Suspect]
     Active Substance: GEMCITABINE\GEMCITABINE HYDROCHLORIDE
     Indication: METASTASES TO LUNG
     Dosage: UNK
     Route: 065
     Dates: start: 201408, end: 2014
  11. CARBOPLATIN. [Suspect]
     Active Substance: CARBOPLATIN
     Indication: METASTASES TO SKIN
  12. GEMCITABINE [Suspect]
     Active Substance: GEMCITABINE\GEMCITABINE HYDROCHLORIDE
     Indication: TRANSITIONAL CELL CARCINOMA
  13. EPIRUBICIN [Suspect]
     Active Substance: EPIRUBICIN
     Indication: METASTASES TO LYMPH NODES
  14. METHOTREXATE. [Suspect]
     Active Substance: METHOTREXATE
     Indication: METASTASES TO LUNG
     Dosage: 3 CYCLICAL
     Route: 065
     Dates: start: 201410, end: 2015

REACTIONS (2)
  - Disease progression [Fatal]
  - Major depression [Unknown]

NARRATIVE: CASE EVENT DATE: 2015
